FAERS Safety Report 6215625-0 (Version None)
Quarter: 2009Q2

REPORT INFORMATION
  Report Type: 
  Country: None (occurrence: None)
  Receive Date: 20090603
  Receipt Date: 20090603
  Transmission Date: 20091009
  Serious: Yes (Hospitalization)
  Sender: FDA-Public Use
  Company Number: None

PATIENT
  Sex: Female
  Weight: 45 kg

DRUGS (2)
  1. BACTRIM [Suspect]
     Dosage: PO
     Route: 048
     Dates: start: 20090108
  2. BACTRIM [Suspect]
     Dosage: PO
     Route: 048
     Dates: start: 20090118

REACTIONS (1)
  - STEVENS-JOHNSON SYNDROME [None]
